FAERS Safety Report 22330179 (Version 1)
Quarter: 2023Q2

REPORT INFORMATION
  Report Type: Spontaneous
  Country: US (occurrence: None)
  Receive Date: 20230517
  Receipt Date: 20230517
  Transmission Date: 20230721
  Serious: No
  Sender: FDA-Public Use
  Company Number: US-ROCHE-3102964

PATIENT
  Age: 75 Year
  Sex: Male
  Weight: 68.1 kg

DRUGS (2)
  1. ACTEMRA [Suspect]
     Active Substance: TOCILIZUMAB
     Indication: Rheumatoid arthritis
     Dosage: (STRENGTH: 162MG/0.9M)
     Route: 058
     Dates: start: 20220311
  2. ACTEMRA [Suspect]
     Active Substance: TOCILIZUMAB

REACTIONS (7)
  - Product dose omission issue [Unknown]
  - Drug delivery system malfunction [Unknown]
  - Device malfunction [Unknown]
  - Device defective [Unknown]
  - Needle issue [Unknown]
  - Accidental exposure to product [Unknown]
  - No adverse event [Unknown]

NARRATIVE: CASE EVENT DATE: 20220520
